FAERS Safety Report 8275152-6 (Version None)
Quarter: 2012Q2

REPORT INFORMATION
  Report Type: 
  Country: None (occurrence: None)
  Receive Date: 20120411
  Receipt Date: 20120403
  Transmission Date: 20120825
  Serious: Yes (Other)
  Sender: FDA-Public Use
  Company Number: PHHY2012ES025547

PATIENT
  Sex: Female
  Weight: 2.84 kg

DRUGS (2)
  1. AMOXICILLIN AND CLAVULANATE POTASSIUM [Suspect]
     Indication: PYELONEPHRITIS ACUTE
  2. METAMIZOLE [Suspect]
     Dosage: MATERNAL DOSE 2G/8 HOURS
     Route: 064

REACTIONS (18)
  - CARDIOMEGALY [None]
  - PREMATURE BABY [None]
  - HYPOPROTEINAEMIA [None]
  - DYSPNOEA [None]
  - LOCALISED OEDEMA [None]
  - DUCTUS ARTERIOSUS STENOSIS FOETAL [None]
  - RENAL FAILURE ACUTE [None]
  - RIGHT VENTRICULAR HYPERTROPHY [None]
  - PERICARDIAL EFFUSION [None]
  - BLOOD CREATININE INCREASED [None]
  - OEDEMA PERIPHERAL [None]
  - OLIGURIA [None]
  - ATRIAL SEPTAL DEFECT [None]
  - PULMONARY HYPERTENSION [None]
  - FOETAL DISTRESS SYNDROME [None]
  - HYDROPS FOETALIS [None]
  - HYPOALBUMINAEMIA [None]
  - FOETAL EXPOSURE DURING PREGNANCY [None]
